FAERS Safety Report 5221478-X (Version None)
Quarter: 2007Q1

REPORT INFORMATION
  Report Type: 
  Country: None (occurrence: None)
  Receive Date: 20070126
  Receipt Date: 20070115
  Transmission Date: 20070707
  Serious: Yes (Other)
  Sender: FDA-Public Use
  Company Number: GB-PFIZER INC-2007004906

PATIENT
  Sex: Male

DRUGS (1)
  1. EPANUTIN [Suspect]
     Indication: EPILEPSY
     Route: 048

REACTIONS (1)
  - HEPATIC STEATOSIS [None]
